FAERS Safety Report 5469352-8 (Version None)
Quarter: 2007Q3

REPORT INFORMATION
  Report Type: 
  Country: None (occurrence: None)
  Receive Date: 20070927
  Receipt Date: 20070921
  Transmission Date: 20080115
  Serious: Yes (Hospitalization, Other)
  Sender: FDA-Public Use
  Company Number: PHNR2007AU01866

PATIENT
  Age: 18 Year
  Sex: Female

DRUGS (5)
  1. CLOZARIL [Suspect]
     Indication: SCHIZOPHRENIA
     Dosage: 75 MG - 150 MG DAILY
     Route: 048
     Dates: start: 20060320, end: 20060525
  2. CLOZARIL [Suspect]
     Dosage: 50 MG - 350 MG DAILY
     Route: 048
     Dates: start: 20060526, end: 20060928
  3. CLOZARIL [Suspect]
     Dosage: 400 MG DAILY
     Route: 048
     Dates: start: 20061003, end: 20070808
  4. CLOZARIL [Suspect]
     Dosage: 6.25 MG - 50 MG DAILY
     Route: 048
     Dates: start: 20070830
  5. ELECTROLYTES NOS [Concomitant]

REACTIONS (19)
  - ANAEMIA [None]
  - BLOOD CREATINE PHOSPHOKINASE INCREASED [None]
  - BLOOD PRESSURE FLUCTUATION [None]
  - C-REACTIVE PROTEIN INCREASED [None]
  - DELUSION [None]
  - DILATATION VENTRICULAR [None]
  - HEART RATE IRREGULAR [None]
  - HYPOCALCAEMIA [None]
  - HYPOPARATHYROIDISM [None]
  - INFECTION [None]
  - LOWER RESPIRATORY TRACT INFECTION [None]
  - LYMPHOCYTE COUNT DECREASED [None]
  - MENTAL IMPAIRMENT [None]
  - NERVOUS SYSTEM DISORDER [None]
  - NEUTROPENIA [None]
  - NUCLEAR MAGNETIC RESONANCE IMAGING ABNORMAL [None]
  - PYREXIA [None]
  - RED BLOOD CELL SEDIMENTATION RATE INCREASED [None]
  - WHITE BLOOD CELL COUNT DECREASED [None]
